FAERS Safety Report 4430718-6 (Version None)
Quarter: 2004Q3

REPORT INFORMATION
  Report Type: 
  Country: None (occurrence: None)
  Receive Date: 20040819
  Receipt Date: 20040819
  Transmission Date: 20050211
  Serious: Yes (Life-Threatening, Hospitalization, Disabling)
  Sender: FDA-Public Use
  Company Number: None

PATIENT
  Sex: Female
  Weight: 57 kg

DRUGS (6)
  1. LANTUS [Suspect]
     Indication: DIABETES MELLITUS INSULIN-DEPENDENT
     Dosage: 6 UNITS QHS SUBCUTANEOUS
     Route: 058
     Dates: start: 20040410, end: 20040415
  2. ASPIRIN [Concomitant]
  3. RAMIPRIL [Concomitant]
  4. SYNTHROID [Concomitant]
  5. NEPHROVITE [Concomitant]
  6. CITALOPRAM [Concomitant]

REACTIONS (3)
  - COMA [None]
  - HYPOGLYCAEMIA [None]
  - MOANING [None]
